FAERS Safety Report 7787326-9 (Version None)
Quarter: 2011Q3

REPORT INFORMATION
  Report Type: 
  Country: None (occurrence: None)
  Receive Date: 20110929
  Receipt Date: 20110921
  Transmission Date: 20111222
  Serious: Yes (Hospitalization)
  Sender: FDA-Public Use
  Company Number: GXKR2010DK10174

PATIENT
  Sex: Male

DRUGS (3)
  1. PREDNISOLONE [Concomitant]
  2. METHOTREXATE [Suspect]
     Indication: COLITIS ULCERATIVE
     Route: 048
     Dates: start: 20090327, end: 20091205
  3. ASACOL [Concomitant]

REACTIONS (4)
  - VISUAL FIELD TESTS ABNORMAL [None]
  - HEADACHE [None]
  - INTRACRANIAL PRESSURE INCREASED [None]
  - PAPILLOEDEMA [None]
